FAERS Safety Report 8018600-9 (Version None)
Quarter: 2012Q1

REPORT INFORMATION
  Report Type: 
  Country: None (occurrence: None)
  Receive Date: 20120103
  Receipt Date: 20111219
  Transmission Date: 20120608
  Serious: Yes (Death, Other)
  Sender: FDA-Public Use
  Company Number: US-PFIZER INC-2011311920

PATIENT
  Age: 47 Year
  Sex: Male

DRUGS (8)
  1. MIRTAZAPINE [Suspect]
     Route: 048
  2. BUSPIRONE HCL [Suspect]
     Route: 048
  3. ZOLPIDEM [Suspect]
     Route: 048
  4. GABAPENTIN [Suspect]
     Dosage: UNK
     Route: 048
  5. VENLAFAXINE HCL [Suspect]
     Route: 048
  6. FLURAZEPAM [Suspect]
     Route: 048
  7. CHLORAL HYDRATE [Suspect]
     Route: 048
  8. TRAZODONE HCL [Suspect]
     Route: 048

REACTIONS (1)
  - COMPLETED SUICIDE [None]
